FAERS Safety Report 20557111 (Version 1)
Quarter: 2022Q1

REPORT INFORMATION
  Report Type: Spontaneous
  Country: US (occurrence: US)
  Receive Date: 20220307
  Receipt Date: 20220307
  Transmission Date: 20220423
  Serious: Yes (Hospitalization)
  Sender: FDA-Public Use
  Company Number: US-CELGENE-USA-20220301188

PATIENT
  Sex: Male
  Weight: 66.738 kg

DRUGS (1)
  1. REVLIMID [Suspect]
     Active Substance: LENALIDOMIDE
     Indication: 5q minus syndrome
     Dosage: 2.5 MILLIGRAM
     Route: 048
     Dates: start: 202201

REACTIONS (1)
  - Full blood count decreased [Not Recovered/Not Resolved]
